FAERS Safety Report 23272236 (Version 1)
Quarter: 2023Q4

REPORT INFORMATION
  Report Type: Spontaneous
  Country: CN (occurrence: CN)
  Receive Date: 20231207
  Receipt Date: 20231207
  Transmission Date: 20240110
  Serious: Yes (Other)
  Sender: FDA-Public Use
  Company Number: CN-FreseniusKabi-FK202319971

PATIENT
  Age: 33 Year
  Sex: Male

DRUGS (16)
  1. PROPOFOL [Suspect]
     Active Substance: PROPOFOL
     Indication: Status epilepticus
     Route: 042
  2. PROPOFOL [Suspect]
     Active Substance: PROPOFOL
     Dosage: 0.15G/H
  3. PROPOFOL [Suspect]
     Active Substance: PROPOFOL
     Dosage: INCREASED THE PUMP SPEED  TO 0.2G/H
  4. PROPOFOL [Suspect]
     Active Substance: PROPOFOL
     Route: 042
  5. PROPOFOL [Suspect]
     Active Substance: PROPOFOL
     Dosage: INCREASED TO 0.6G/H
  6. PROPOFOL [Suspect]
     Active Substance: PROPOFOL
     Dosage: RATE WAS REDUCED TO 0.4G/H
     Route: 042
  7. PROPOFOL [Suspect]
     Active Substance: PROPOFOL
     Dosage: RATE WAS INCREASED TO 0.6G/H AGAIN
     Route: 042
  8. PROPOFOL [Suspect]
     Active Substance: PROPOFOL
     Dosage: LOWERED TO 10ML/H
  9. PROPOFOL [Suspect]
     Active Substance: PROPOFOL
     Dosage: 0.6G/H
     Route: 042
  10. PROPOFOL [Suspect]
     Active Substance: PROPOFOL
     Dosage: REDUCED TO 0.2G/H
     Route: 042
  11. PROPOFOL [Suspect]
     Active Substance: PROPOFOL
     Dosage: REDUCED AT A RATE OF 5ML/3H
  12. DIAZEPAM [Concomitant]
     Active Substance: DIAZEPAM
  13. LEVETIRACETAM [Concomitant]
     Active Substance: LEVETIRACETAM
  14. VALPROATE [Concomitant]
     Active Substance: VALPROIC ACID
  15. OXCARBAZEPINE [Concomitant]
     Active Substance: OXCARBAZEPINE
  16. MIDAZOLAM [Concomitant]
     Active Substance: MIDAZOLAM

REACTIONS (2)
  - Tonic convulsion [Recovered/Resolved]
  - Condition aggravated [Recovered/Resolved]
